FAERS Safety Report 4528073-6 (Version None)
Quarter: 2004Q4

REPORT INFORMATION
  Report Type: 
  Country: None (occurrence: None)
  Receive Date: 20041123
  Receipt Date: 20040708
  Transmission Date: 20050328
  Serious: Yes (Other)
  Sender: FDA-Public Use
  Company Number: 2004038989

PATIENT
  Age: 64 Year
  Sex: Female
  Weight: 73.9363 kg

DRUGS (4)
  1. LIPITOR [Suspect]
     Indication: BLOOD CHOLESTEROL
     Dosage: 20 MG (20 MG, 1 IN 1 D), ORAL
     Route: 048
     Dates: start: 20030101, end: 20040601
  2. TELMISARTAN (TELMISARTAN) [Concomitant]
  3. MICARDIS HCT (HYDROCHLOROTHIAZIDE, TELMISARTANT) [Concomitant]
  4. LEVOTHYROXINE SODIUM [Concomitant]

REACTIONS (4)
  - HEPATITIS [None]
  - LOW DENSITY LIPOPROTEIN ABNORMAL [None]
  - MYOSITIS [None]
  - RHABDOMYOLYSIS [None]
